FAERS Safety Report 19648288 (Version 2)
Quarter: 2022Q1

REPORT INFORMATION
  Report Type: Spontaneous
  Country: US (occurrence: US)
  Receive Date: 20210803
  Receipt Date: 20220131
  Transmission Date: 20220423
  Serious: Yes (Death, Hospitalization, Other)
  Sender: FDA-Public Use
  Company Number: US-GILEAD-2021-0542497

PATIENT
  Sex: Male

DRUGS (32)
  1. VIREAD [Suspect]
     Active Substance: TENOFOVIR DISOPROXIL FUMARATE
     Indication: HIV infection
     Dosage: UNK
     Route: 048
     Dates: start: 2015
  2. VIREAD [Suspect]
     Active Substance: TENOFOVIR DISOPROXIL FUMARATE
     Dosage: UNK
     Route: 065
     Dates: start: 2015, end: 201912
  3. TRUVADA [Suspect]
     Active Substance: EMTRICITABINE\TENOFOVIR DISOPROXIL FUMARATE
     Indication: HIV infection
     Dosage: UNK
     Route: 048
     Dates: start: 2015
  4. TRUVADA [Suspect]
     Active Substance: EMTRICITABINE\TENOFOVIR DISOPROXIL FUMARATE
     Dosage: UNK
     Route: 065
     Dates: start: 2015, end: 20161211
  5. DESCOVY [Concomitant]
     Active Substance: EMTRICITABINE\TENOFOVIR ALAFENAMIDE FUMARATE
  6. EMTRIVA [Concomitant]
     Active Substance: EMTRICITABINE
  7. ISENTRESS [Concomitant]
     Active Substance: RALTEGRAVIR POTASSIUM
  8. JULUCA [Concomitant]
     Active Substance: DOLUTEGRAVIR SODIUM\RILPIVIRINE HYDROCHLORIDE
  9. NORVIR [Concomitant]
     Active Substance: RITONAVIR
  10. PREZCOBIX [Concomitant]
     Active Substance: COBICISTAT\DARUNAVIR ETHANOLATE
  11. PREZISTA [Concomitant]
     Active Substance: DARUNAVIR ETHANOLATE
  12. TIVICAY [Concomitant]
     Active Substance: DOLUTEGRAVIR SODIUM
  13. LYRICA [Concomitant]
     Active Substance: PREGABALIN
  14. ALLOPURINOL [Concomitant]
     Active Substance: ALLOPURINOL
  15. TORSEMIDE [Concomitant]
     Active Substance: TORSEMIDE
  16. CALCIUM ACETATE [Concomitant]
     Active Substance: CALCIUM ACETATE
  17. ELIQUIS [Concomitant]
     Active Substance: APIXABAN
  18. GABAPENTIN [Concomitant]
     Active Substance: GABAPENTIN
  19. MIDODRINE [Concomitant]
     Active Substance: MIDODRINE
  20. MIRTAZAPINE [Concomitant]
     Active Substance: MIRTAZAPINE
  21. NOVOLOG [Concomitant]
     Active Substance: INSULIN ASPART
  22. PRAVASTATIN [Concomitant]
     Active Substance: PRAVASTATIN
  23. PROAIR HFA [Concomitant]
     Active Substance: ALBUTEROL SULFATE
  24. COLLAGENASE SANTYL [Concomitant]
     Active Substance: COLLAGENASE CLOSTRIDIUM HISTOLYTICUM
  25. SERTRALINE [Concomitant]
     Active Substance: SERTRALINE HYDROCHLORIDE
  26. TEMAZEPAM [Concomitant]
     Active Substance: TEMAZEPAM
  27. SYMBICORT [Concomitant]
     Active Substance: BUDESONIDE\FORMOTEROL FUMARATE DIHYDRATE
  28. VENTOLIN HFA [Concomitant]
     Active Substance: ALBUTEROL SULFATE
  29. CARVEDILOL [Concomitant]
     Active Substance: CARVEDILOL
  30. LISINOPRIL [Concomitant]
     Active Substance: LISINOPRIL
  31. PRAMIPEXOLE [Concomitant]
     Active Substance: PRAMIPEXOLE
  32. LANTUS [Concomitant]
     Active Substance: INSULIN GLARGINE

REACTIONS (18)
  - End stage renal disease [Fatal]
  - Sepsis [Fatal]
  - Chronic kidney disease [Unknown]
  - Cardiac failure [Unknown]
  - Syncope [Unknown]
  - Cardiac failure congestive [Unknown]
  - Encephalopathy [Unknown]
  - Pneumonia [Unknown]
  - Chronic obstructive pulmonary disease [Unknown]
  - Gastric ulcer [Unknown]
  - Respiratory failure [Unknown]
  - Renal failure [Unknown]
  - Dyspnoea [Unknown]
  - Pain [Unknown]
  - Emotional distress [Unknown]
  - Anxiety [Unknown]
  - Anhedonia [Unknown]
  - Injury [Unknown]

NARRATIVE: CASE EVENT DATE: 20160101
